FAERS Safety Report 5145036-0 (Version None)
Quarter: 2006Q4

REPORT INFORMATION
  Report Type: 
  Country: None (occurrence: None)
  Receive Date: 20061107
  Receipt Date: 20060908
  Transmission Date: 20070319
  Serious: Yes (Other)
  Sender: FDA-Public Use
  Company Number: JP-JPN-A200603597

PATIENT
  Sex: Female

DRUGS (4)
  1. PAXIL [Suspect]
     Indication: DEPRESSION
     Route: 048
     Dates: start: 20060808
  2. CERCINE [Suspect]
     Indication: ANXIETY
     Dosage: 10MG PER DAY
     Route: 048
     Dates: start: 20060719
  3. SERENACE [Suspect]
     Indication: DRUG USE FOR UNKNOWN INDICATION
     Route: 048
  4. RIZE [Concomitant]
     Indication: ANXIETY
     Dosage: 5MG PER DAY
     Route: 048
     Dates: start: 20060805

REACTIONS (6)
  - ABORTION INDUCED [None]
  - ANXIETY [None]
  - DRUG INTERACTION [None]
  - MENTAL DISORDER [None]
  - MUSCULOSKELETAL STIFFNESS [None]
  - TREMOR [None]
